FAERS Safety Report 9162556 (Version 2)
Quarter: 2013Q2

REPORT INFORMATION
  Report Type: Spontaneous
  Country: FR (occurrence: FR)
  Receive Date: 20130314
  Receipt Date: 20130608
  Transmission Date: 20140414
  Serious: Yes (Hospitalization)
  Sender: FDA-Public Use
  Company Number: FR-PFIZER INC-2013084700

PATIENT
  Age: 89 Year
  Sex: Female

DRUGS (9)
  1. CORDARONE [Suspect]
     Indication: ATRIAL FIBRILLATION
     Dosage: 100 MG, 1X/DAY
     Route: 048
  2. PREVISCAN [Concomitant]
     Dosage: UNK
  3. INEXIUM [Concomitant]
     Dosage: UNK
  4. IDEOS [Concomitant]
     Dosage: UNK
  5. NISISCO [Concomitant]
     Dosage: UNK
  6. SPECIAFOLDINE [Concomitant]
     Dosage: UNK
  7. STABLON [Concomitant]
     Dosage: UNK
  8. STILNOX [Concomitant]
     Dosage: UNK
  9. SOLUPRED [Concomitant]
     Dosage: UNK

REACTIONS (3)
  - Cardiac failure [Recovered/Resolved]
  - Hyperthyroidism [Recovered/Resolved]
  - Lung disorder [Unknown]
